FAERS Safety Report 7776143-1 (Version None)
Quarter: 2011Q3

REPORT INFORMATION
  Report Type: 
  Country: None (occurrence: None)
  Receive Date: 20110926
  Receipt Date: 20110914
  Transmission Date: 20111222
  Serious: Yes (Other)
  Sender: FDA-Public Use
  Company Number: IT-PAR PHARMACEUTICAL, INC-2011SCPR003212

PATIENT

DRUGS (4)
  1. BORTEZOMIB [Suspect]
     Indication: AMYLOIDOSIS
     Dosage: 1.3 MG/M2; DAY 1, 4, 8, 11 Q21
     Route: 065
  2. CIPROFLOXACINE                     /00697201/ [Concomitant]
     Indication: INFECTION PROPHYLAXIS
     Dosage: 250 MG, BID FROM DAY 1 TO DAY 9 EVERY CYCLE
     Route: 065
  3. ACYCLOVIR [Concomitant]
     Indication: INFECTION PROPHYLAXIS
     Dosage: 20 MG, BID CONTINUOSLY
     Route: 065
  4. DEXAMETHASONE [Suspect]
     Indication: AMYLOIDOSIS
     Dosage: 20 MG,  DAY 1-2, 8-9 Q21
     Route: 048

REACTIONS (5)
  - ORTHOSTATIC HYPOTENSION [None]
  - FATIGUE [None]
  - PERIPHERAL SENSORIMOTOR NEUROPATHY [None]
  - OEDEMA PERIPHERAL [None]
  - CONSTIPATION [None]
